FAERS Safety Report 10606268 (Version 2)
Quarter: 2014Q4

REPORT INFORMATION
  Report Type: Spontaneous
  Country: IT (occurrence: None)
  Receive Date: 20141121
  Receipt Date: 20141229
  Transmission Date: 20150529
  Serious: Yes (Hospitalization)
  Sender: FDA-Public Use
  Company Number: 2622586

PATIENT
  Age: 79 Year
  Sex: Male

DRUGS (2)
  1. REAPTAN [Concomitant]
     Active Substance: AMLODIPINE BESYLATE
  2. CEFTRIAXONE SODIUM. [Suspect]
     Active Substance: CEFTRIAXONE SODIUM
     Indication: BRONCHITIS
     Route: 030
     Dates: start: 20141017, end: 20141017

REACTIONS (3)
  - Oedema [None]
  - Dyspnoea [None]
  - Suffocation feeling [None]

NARRATIVE: CASE EVENT DATE: 20141017
